FAERS Safety Report 7763883-3 (Version None)
Quarter: 2011Q3

REPORT INFORMATION
  Report Type: 
  Country: None (occurrence: None)
  Receive Date: 20110921
  Receipt Date: 20110815
  Transmission Date: 20111222
  Serious: No
  Sender: FDA-Public Use
  Company Number: US-BAYER-2011-019836

PATIENT
  Age: 32 Year
  Sex: Female

DRUGS (2)
  1. MIRENA [Suspect]
     Dosage: 20 MCG/24HR, CONT
     Route: 015
     Dates: start: 20100419, end: 20110202
  2. MIRENA [Suspect]
     Dosage: 20 MCG/24HR, CONT
     Route: 015
     Dates: start: 20110310, end: 20110510

REACTIONS (3)
  - ABDOMINAL PAIN [None]
  - GENITAL HAEMORRHAGE [None]
  - DEVICE EXPULSION [None]
